FAERS Safety Report 19051894 (Version 2)
Quarter: 2021Q2

REPORT INFORMATION
  Report Type: Spontaneous
  Country: US (occurrence: US)
  Receive Date: 20210324
  Receipt Date: 20210414
  Transmission Date: 20210717
  Serious: No
  Sender: FDA-Public Use
  Company Number: US-PFIZER INC-2021270269

PATIENT
  Age: 26 Year
  Sex: Male

DRUGS (2)
  1. DOCETAXEL. [Suspect]
     Active Substance: DOCETAXEL
     Indication: ANGIOSARCOMA
     Dosage: 100 MG/M2 ON DAY 8, 3 CYCLES
  2. GEMCITABINE HYDROCHLORIDE. [Suspect]
     Active Substance: GEMCITABINE HYDROCHLORIDE
     Indication: ANGIOSARCOMA
     Dosage: 900 MG/M2, CYCLIC DAYS 1 AND 8, 3 CYCLES

REACTIONS (1)
  - Off label use [Unknown]
